FAERS Safety Report 13265589 (Version 1)
Quarter: 2017Q1

REPORT INFORMATION
  Report Type: Spontaneous
  Country: GB (occurrence: GB)
  Receive Date: 20170223
  Receipt Date: 20170223
  Transmission Date: 20170428
  Serious: Yes (Other)
  Sender: FDA-Public Use
  Company Number: GB-INGENUS PHARMACEUTICALS NJ, LLC-ING201702-000080

PATIENT
  Age: 74 Year
  Sex: Male

DRUGS (3)
  1. CARISOPRODOL AND ASPIRIN [Suspect]
     Active Substance: ASPIRIN\CARISOPRODOL
     Indication: TRANSIENT ISCHAEMIC ATTACK
  2. CARISOPRODOL AND ASPIRIN [Suspect]
     Active Substance: ASPIRIN\CARISOPRODOL
     Indication: ISCHAEMIC STROKE
  3. CLOPIDOGREL [Concomitant]
     Active Substance: CLOPIDOGREL BISULFATE
     Indication: TRANSIENT ISCHAEMIC ATTACK

REACTIONS (3)
  - Subarachnoid haemorrhage [Unknown]
  - Product use issue [Unknown]
  - Aneurysm ruptured [Unknown]
